FAERS Safety Report 16059459 (Version 1)
Quarter: 2019Q1

REPORT INFORMATION
  Report Type: Spontaneous
  Country: US (occurrence: US)
  Receive Date: 20190311
  Receipt Date: 20190311
  Transmission Date: 20190418
  Serious: No
  Sender: FDA-Public Use
  Company Number: US-GALDERMA-US18001413

PATIENT
  Age: 72 Year
  Sex: Female

DRUGS (19)
  1. CYCLOBENZAPRINE. [Concomitant]
     Active Substance: CYCLOBENZAPRINE
  2. VIT K2 [Concomitant]
  3. RED YEAST RICE [Concomitant]
     Active Substance: DIETARY SUPPLEMENT
  4. TERAZOSIN [Concomitant]
     Active Substance: TERAZOSIN\TERAZOSIN HYDROCHLORIDE
  5. METOPROLOL. [Concomitant]
     Active Substance: METOPROLOL
  6. TRI-LUMA [Suspect]
     Active Substance: FLUOCINOLONE ACETONIDE\HYDROQUINONE\TRETINOIN
     Indication: PIGMENTATION DISORDER
     Route: 061
     Dates: end: 201801
  7. BIOTIN [Concomitant]
     Active Substance: BIOTIN
  8. OMEGA 3 OIL [Concomitant]
  9. HYDROCODONE [Concomitant]
     Active Substance: HYDROCODONE
  10. FIBER [Concomitant]
     Active Substance: PSYLLIUM HUSK
  11. MAGNESIUM [Concomitant]
     Active Substance: MAGNESIUM
  12. ASPIRIN. [Concomitant]
     Active Substance: ASPIRIN
  13. VITAMIN C [Concomitant]
     Active Substance: ASCORBIC ACID
  14. VITAMIN D3 [Concomitant]
     Active Substance: CHOLECALCIFEROL
  15. SELENIUM [Concomitant]
     Active Substance: SELENIUM
  16. SYNTHROID [Concomitant]
     Active Substance: LEVOTHYROXINE SODIUM
  17. UBIQUINOL [Concomitant]
     Active Substance: UBIQUINOL
  18. TURMERIC [Concomitant]
     Active Substance: HERBALS\TURMERIC
  19. IBUPROFEN. [Concomitant]
     Active Substance: IBUPROFEN

REACTIONS (4)
  - Condition aggravated [Recovered/Resolved]
  - Drug ineffective for unapproved indication [Recovered/Resolved]
  - Product use in unapproved indication [Recovered/Resolved]
  - Skin discolouration [Recovered/Resolved]

NARRATIVE: CASE EVENT DATE: 201712
